FAERS Safety Report 15959351 (Version 2)
Quarter: 2019Q1

REPORT INFORMATION
  Report Type: Spontaneous
  Country: US (occurrence: US)
  Receive Date: 20190214
  Receipt Date: 20190221
  Transmission Date: 20190417
  Serious: Yes (Other)
  Sender: FDA-Public Use
  Company Number: US-HORIZON-VIM-0072-2019

PATIENT
  Sex: Male

DRUGS (13)
  1. ACIPHEX [Suspect]
     Active Substance: RABEPRAZOLE SODIUM
     Route: 065
     Dates: start: 2016, end: 2017
  2. ASPIRIN. [Concomitant]
     Active Substance: ASPIRIN
  3. LEVEMIR [Concomitant]
     Active Substance: INSULIN DETEMIR
  4. LISINOPRIL. [Concomitant]
     Active Substance: LISINOPRIL
  5. HUMALOG [Concomitant]
     Active Substance: INSULIN LISPRO
  6. ACETAMINOPHEN. [Concomitant]
     Active Substance: ACETAMINOPHEN
  7. PRILOSEC [Suspect]
     Active Substance: OMEPRAZOLE MAGNESIUM
     Route: 048
     Dates: start: 2016, end: 2017
  8. PRILOSEC [Suspect]
     Active Substance: OMEPRAZOLE MAGNESIUM
     Route: 048
     Dates: start: 20160729
  9. IBUPROFEN. [Concomitant]
     Active Substance: IBUPROFEN
  10. TAMSULOSIN [Concomitant]
     Active Substance: TAMSULOSIN
  11. VIMOVO [Suspect]
     Active Substance: ESOMEPRAZOLE MAGNESIUM\NAPROXEN
     Indication: PRODUCT USED FOR UNKNOWN INDICATION
     Route: 048
     Dates: start: 2016, end: 2017
  12. NAPROXEN. [Concomitant]
     Active Substance: NAPROXEN
  13. CARVEDILOL. [Concomitant]
     Active Substance: CARVEDILOL

REACTIONS (2)
  - Acute kidney injury [Unknown]
  - Renal failure [Unknown]
